FAERS Safety Report 8608848 (Version 3)
Quarter: 2012Q4

REPORT INFORMATION
  Report Type: 
  Country: GB (occurrence: GB)
  Receive Date: 20120611
  Receipt Date: 20121107
  Transmission Date: 20130627
  Serious: Yes (Hospitalization)
  Sender: FDA-Public Use
  Company Number: GB-B.I. PHARMACEUTICALS,INC./RIDGEFIELD-2012-UK-00745UK

PATIENT
  Age: 28 Year
  Sex: Female
  Weight: 54.2 kg

DRUGS (4)
  1. VIRAMUNE [Suspect]
     Indication: HIV INFECTION
     Dosage: 200 mg
     Route: 048
     Dates: start: 20120402, end: 20120417
  2. TRUVADA [Concomitant]
     Indication: HIV INFECTION
     Route: 048
     Dates: start: 20120402
  3. CYCLIZINE [Concomitant]
     Indication: PROPHYLAXIS OF NAUSEA AND VOMITING
     Dosage: PRN ,50mg up to TDS
     Route: 048
     Dates: start: 20120402, end: 20120417
  4. KALETRA [Concomitant]
     Indication: HIV INFECTION
     Dosage: 2 tabs bd
     Route: 048
     Dates: start: 20120417

REACTIONS (8)
  - Rash [Recovered/Resolved]
  - Hepatic enzyme increased [Recovered/Resolved]
  - Pyrexia [Recovered/Resolved]
  - Constipation [Recovered/Resolved]
  - Hypersensitivity [Recovered/Resolved]
  - CD4 lymphocytes decreased [Recovered/Resolved]
  - Fatigue [Recovered/Resolved]
  - Myalgia [Recovered/Resolved]
